FAERS Safety Report 7536869-1 (Version None)
Quarter: 2011Q2

REPORT INFORMATION
  Report Type: 
  Country: None (occurrence: None)
  Receive Date: 20110609
  Receipt Date: 20110531
  Transmission Date: 20111010
  Serious: Yes (Hospitalization, Other)
  Sender: FDA-Public Use
  Company Number: JP-ACTELION-A-CH2011-44789

PATIENT
  Age: 80 Year
  Sex: Male

DRUGS (10)
  1. BERAPROST SODIUM [Suspect]
  2. SPIRONOLACTONE [Concomitant]
  3. TRACLEER [Suspect]
     Indication: PULMONARY ARTERIAL HYPERTENSION
     Dosage: 62.5 MG, QD
     Route: 048
     Dates: start: 20110112, end: 20110125
  4. OLMESARTAN MEDOXOMIL [Concomitant]
  5. LACTOMIN [Concomitant]
  6. TEPRENONE [Concomitant]
  7. MECOBALAMIN [Concomitant]
  8. TORSEMIDE [Concomitant]
  9. FUROSEMIDE [Concomitant]
  10. LACTULOSE [Concomitant]

REACTIONS (5)
  - ABDOMINAL CAVITY DRAINAGE [None]
  - OEDEMA [None]
  - NAUSEA [None]
  - ASCITES [None]
  - PLATELET COUNT DECREASED [None]
